FAERS Safety Report 5722195-X (Version None)
Quarter: 2008Q2

REPORT INFORMATION
  Report Type: 
  Country: None (occurrence: None)
  Receive Date: 20080425
  Receipt Date: 20080417
  Transmission Date: 20081010
  Serious: Yes (Other)
  Sender: FDA-Public Use
  Company Number: 163-20785-08041343

PATIENT
  Sex: Male

DRUGS (2)
  1. THALOMID [Suspect]
     Indication: MULTIPLE MYELOMA
     Dosage: 100 MG, 2 IN 1 D, ORAL; 150 MG, ORAL
     Route: 048
     Dates: start: 20071224
  2. DEXAMETHASONE TAB [Suspect]
     Indication: DRUG USE FOR UNKNOWN INDICATION
     Dosage: 10 MG, ONCE A WEEK
     Route: 048
     Dates: start: 20071224

REACTIONS (5)
  - ABASIA [None]
  - DYSPNOEA [None]
  - OEDEMA PERIPHERAL [None]
  - RENAL CANCER [None]
  - WEIGHT INCREASED [None]
